FAERS Safety Report 5287126-8 (Version None)
Quarter: 2007Q2

REPORT INFORMATION
  Report Type: 
  Country: None (occurrence: None)
  Receive Date: 20070404
  Receipt Date: 20070326
  Transmission Date: 20071010
  Serious: Yes (Hospitalization, Other)
  Sender: FDA-Public Use
  Company Number: US-PFIZER INC-2007010614

PATIENT
  Sex: Female
  Weight: 49.9 kg

DRUGS (1)
  1. ZOLOFT [Suspect]
     Indication: DEPRESSION

REACTIONS (10)
  - AMENORRHOEA [None]
  - ANGIOPATHY [None]
  - HAEMOGLOBIN DECREASED [None]
  - HAEMORRHAGE [None]
  - MIGRAINE [None]
  - PALPITATIONS [None]
  - PLATELET AGGREGATION DECREASED [None]
  - PLATELET FUNCTION TEST ABNORMAL [None]
  - SKIN DISCOLOURATION [None]
  - TACHYCARDIA [None]
